FAERS Safety Report 6162492-X (Version None)
Quarter: 2009Q2

REPORT INFORMATION
  Report Type: 
  Country: None (occurrence: None)
  Receive Date: 20090417
  Receipt Date: 20090407
  Transmission Date: 20091009
  Serious: Yes (Hospitalization)
  Sender: FDA-Public Use
  Company Number: 2009-01262

PATIENT
  Age: 71 Year
  Sex: Female
  Weight: 71 kg

DRUGS (7)
  1. VELCADE [Suspect]
     Indication: MULTIPLE MYELOMA
     Dosage: 2.3 MG, SUBCUTANEOUS
     Route: 058
     Dates: start: 20090316, end: 20090326
  2. AMOKSIKLAV (AMOXICILLIN, CLAVULANIC ACID) [Concomitant]
  3. AMIKACIN [Concomitant]
  4. AMBROXOL (AMBROXOL) [Concomitant]
  5. FLUCONAZOLE [Concomitant]
  6. ASCORBIC ACID [Concomitant]
  7. AMINOPHYLLIN [Concomitant]

REACTIONS (5)
  - ACUTE VESTIBULAR SYNDROME [None]
  - CONSTIPATION [None]
  - NEUROSIS [None]
  - TOXIC ENCEPHALOPATHY [None]
  - TOXIC NEUROPATHY [None]
